FAERS Safety Report 7266200-0 (Version None)
Quarter: 2011Q1

REPORT INFORMATION
  Report Type: 
  Country: None (occurrence: None)
  Receive Date: 20110131
  Receipt Date: 20100820
  Transmission Date: 20110831
  Serious: No
  Sender: FDA-Public Use
  Company Number: US-ABBOTT-10P-163-0665358-00

PATIENT
  Sex: Male

DRUGS (1)
  1. LUPRON DEPOT [Suspect]
     Indication: PRODUCT USED FOR UNKNOWN INDICATION

REACTIONS (16)
  - DISTURBANCE IN ATTENTION [None]
  - CONFUSIONAL STATE [None]
  - HUNGER [None]
  - SENSORY DISTURBANCE [None]
  - POOR QUALITY SLEEP [None]
  - WEIGHT INCREASED [None]
  - BURNING SENSATION [None]
  - PARAESTHESIA [None]
  - POLLAKIURIA [None]
  - INSOMNIA [None]
  - ERECTILE DYSFUNCTION [None]
  - FEELING ABNORMAL [None]
  - DYSPNOEA [None]
  - HOT FLUSH [None]
  - BLOOD PRESSURE INCREASED [None]
  - ASTHENIA [None]
